FAERS Safety Report 9015664 (Version 2)
Quarter: 2013Q3

REPORT INFORMATION
  Report Type: Spontaneous
  Country: US (occurrence: US)
  Receive Date: 20130116
  Receipt Date: 20130815
  Transmission Date: 20140515
  Serious: Yes (Death, Life-Threatening, Hospitalization, Disabling, Other)
  Sender: FDA-Public Use
  Company Number: US-009507513-1301USA006431

PATIENT
  Sex: Female
  Weight: 72.56 kg

DRUGS (10)
  1. JANUVIA [Suspect]
     Indication: TYPE 2 DIABETES MELLITUS
     Dosage: 100 MG, QD
     Route: 048
     Dates: start: 20070829, end: 20080413
  2. BYETTA [Suspect]
     Indication: TYPE 2 DIABETES MELLITUS
     Dosage: 10 MICROGRAM, BID
     Dates: start: 20070103, end: 20081204
  3. HUMALOG [Concomitant]
     Indication: TYPE 2 DIABETES MELLITUS
  4. GLIMEPIRIDE [Concomitant]
     Indication: TYPE 2 DIABETES MELLITUS
  5. DIOVAN [Concomitant]
     Indication: HYPERTENSION
     Dosage: 80/25, QD
  6. METFORMIN HYDROCHLORIDE [Concomitant]
     Indication: TYPE 2 DIABETES MELLITUS
     Dosage: 1000 MG, QD
  7. LASIX (FUROSEMIDE) [Concomitant]
     Dosage: UNK MG, QD
  8. NEXIUM [Concomitant]
     Indication: ARTHRALGIA
     Dosage: 200 MG, QD
  9. LANTUS [Concomitant]
     Indication: TYPE 2 DIABETES MELLITUS
  10. NOVOLOG [Concomitant]
     Indication: TYPE 2 DIABETES MELLITUS

REACTIONS (24)
  - Pancreatic carcinoma [Fatal]
  - Metastases to peritoneum [Unknown]
  - Diabetes mellitus inadequate control [Unknown]
  - Pancreatitis chronic [Not Recovered/Not Resolved]
  - Laparoscopy [Unknown]
  - Abdominal distension [Unknown]
  - Oedema peripheral [Unknown]
  - Weight increased [Unknown]
  - Incorrect dose administered [Unknown]
  - Osteoporosis [Unknown]
  - Venous insufficiency [Unknown]
  - Treatment noncompliance [Unknown]
  - Bile duct stent insertion [Unknown]
  - Bile duct stenosis [Unknown]
  - Blood glucose increased [Unknown]
  - Pneumobilia [Unknown]
  - Adrenal adenoma [Unknown]
  - Sinus disorder [Unknown]
  - Flatulence [Unknown]
  - Administration site infection [Unknown]
  - Abdominal discomfort [Unknown]
  - Drug ineffective [Unknown]
  - Diarrhoea [Unknown]
  - Drug ineffective [Unknown]
